FAERS Safety Report 16383812 (Version 1)
Quarter: 2019Q2

REPORT INFORMATION
  Report Type: Spontaneous
  Country: US (occurrence: US)
  Receive Date: 20190531
  Receipt Date: 20190531
  Transmission Date: 20190711
  Serious: Yes (Life-Threatening, Hospitalization, Disabling)
  Sender: FDA-Public Use
  Company Number: None

PATIENT
  Age: 40 Year
  Sex: Male
  Weight: 54 kg

DRUGS (1)
  1. KYBELLA [Suspect]
     Active Substance: DEOXYCHOLIC ACID
     Dates: start: 20190401, end: 20190401

REACTIONS (4)
  - Musculoskeletal disorder [None]
  - Organ failure [None]
  - Internal haemorrhage [None]
  - Oesophageal disorder [None]

NARRATIVE: CASE EVENT DATE: 20190401
